FAERS Safety Report 19193945 (Version 1)
Quarter: 2021Q2

REPORT INFORMATION
  Report Type: Spontaneous
  Country: US (occurrence: US)
  Receive Date: 20210429
  Receipt Date: 20210429
  Transmission Date: 20210717
  Serious: Yes (Death, Hospitalization)
  Sender: FDA-Public Use
  Company Number: US-MYLANLABS-2021M1024663

PATIENT
  Age: 56 Year
  Sex: Male

DRUGS (1)
  1. GLYCERYL TRINITRATE [Suspect]
     Active Substance: NITROGLYCERIN
     Indication: PULMONARY OEDEMA
     Dosage: UNK

REACTIONS (6)
  - Diastolic dysfunction [Fatal]
  - Off label use [Unknown]
  - Coronary steal syndrome [Fatal]
  - Ventricular hypertrophy [Fatal]
  - Acute myocardial infarction [Fatal]
  - Cardiac arrest [Fatal]
